FAERS Safety Report 7589728-2 (Version None)
Quarter: 2011Q3

REPORT INFORMATION
  Report Type: 
  Country: None (occurrence: None)
  Receive Date: 20110705
  Receipt Date: 20110622
  Transmission Date: 20111222
  Serious: Yes (Other)
  Sender: FDA-Public Use
  Company Number: CA-JNJFOC-20110507676

PATIENT
  Sex: Female
  Weight: 112 kg

DRUGS (4)
  1. REMICADE [Suspect]
     Dosage: 15TH INFUSION
     Route: 042
     Dates: start: 20110505
  2. SULFASALAZINE [Concomitant]
     Route: 065
  3. REMICADE [Suspect]
     Indication: CROHN'S DISEASE
     Route: 042
     Dates: start: 20090904
  4. REMICADE [Suspect]
     Dosage: 16TH INFUSION
     Route: 042
     Dates: start: 20110622

REACTIONS (2)
  - MATERNAL EXPOSURE DURING PREGNANCY [None]
  - ABORTION SPONTANEOUS [None]
